FAERS Safety Report 6717924-2 (Version None)
Quarter: 2010Q2

REPORT INFORMATION
  Report Type: 
  Country: None (occurrence: None)
  Receive Date: 20100510
  Receipt Date: 20100427
  Transmission Date: 20101027
  Serious: Yes (Hospitalization)
  Sender: FDA-Public Use
  Company Number: PHHY2010EC27078

PATIENT
  Age: 73 Year
  Sex: Female

DRUGS (5)
  1. DIOVAN [Suspect]
     Indication: HYPERTENSION
     Dosage: 320 MG, QD
     Route: 048
     Dates: start: 20050101
  2. CORDARONE [Concomitant]
  3. COAPROVEL [Concomitant]
  4. VALERIAN [Concomitant]
  5. CAPTOPRIL [Concomitant]

REACTIONS (4)
  - BLOOD PRESSURE INCREASED [None]
  - EMOTIONAL DISORDER [None]
  - HYPERTENSIVE CRISIS [None]
  - TREATMENT NONCOMPLIANCE [None]
